FAERS Safety Report 23800486 (Version 3)
Quarter: 2024Q2

REPORT INFORMATION
  Report Type: Spontaneous
  Country: US (occurrence: US)
  Receive Date: 20240430
  Receipt Date: 20240603
  Transmission Date: 20240716
  Serious: Yes (Other)
  Sender: FDA-Public Use
  Company Number: US-BRISTOL-MYERS SQUIBB COMPANY-2024-067596

PATIENT
  Age: 60 Year
  Sex: Female
  Weight: 71.67 kg

DRUGS (2)
  1. REVLIMID [Suspect]
     Active Substance: LENALIDOMIDE
     Indication: Plasma cell myeloma
     Route: 048
     Dates: start: 20240401
  2. REVLIMID [Suspect]
     Active Substance: LENALIDOMIDE
     Dosage: 2 WEEKS ON, 1 WEEK OFF
     Route: 048

REACTIONS (5)
  - Nausea [Unknown]
  - Off label use [Unknown]
  - Dehydration [Unknown]
  - Blood creatinine increased [Unknown]
  - Renal impairment [Recovering/Resolving]
